FAERS Safety Report 22588091 (Version 1)
Quarter: 2023Q2

REPORT INFORMATION
  Report Type: Spontaneous
  Country: JP (occurrence: JP)
  Receive Date: 20230612
  Receipt Date: 20230612
  Transmission Date: 20230722
  Serious: Yes (Death, Hospitalization, Other)
  Sender: FDA-Public Use
  Company Number: JP-ASTELLAS-2020JP014613

PATIENT
  Age: 88 Year
  Sex: Female
  Weight: 53.6 kg

DRUGS (17)
  1. XOSPATA [Suspect]
     Active Substance: GILTERITINIB
     Indication: Acute myeloid leukaemia recurrent
     Route: 048
     Dates: start: 20200828, end: 20200914
  2. XOSPATA [Suspect]
     Active Substance: GILTERITINIB
     Indication: Acute myeloid leukaemia refractory
     Route: 048
  3. XOSPATA [Suspect]
     Active Substance: GILTERITINIB
     Route: 048
  4. XOSPATA [Suspect]
     Active Substance: GILTERITINIB
     Route: 048
  5. XOSPATA [Suspect]
     Active Substance: GILTERITINIB
     Dosage: 40 MG, 3 WEEKS ADMINISTRATION AND 1 WEEK DRUG WITHDRAWAL
     Route: 048
  6. XOSPATA [Suspect]
     Active Substance: GILTERITINIB
     Route: 048
  7. TRIAZOLAM [Suspect]
     Active Substance: TRIAZOLAM
     Indication: Product used for unknown indication
     Dosage: 0.25 MG/DAY, UNKNOWN FREQ.
     Route: 048
  8. SPIRONOLACTONE [Concomitant]
     Active Substance: SPIRONOLACTONE
     Indication: Cardiac failure
     Route: 048
  9. VONOPRAZAN FUMARATE [Concomitant]
     Active Substance: VONOPRAZAN FUMARATE
     Indication: Chronic gastritis
     Route: 048
  10. MAGNESIUM OXIDE [Concomitant]
     Active Substance: MAGNESIUM OXIDE
     Indication: Constipation
     Route: 048
  11. FUROSEMIDE [Concomitant]
     Active Substance: FUROSEMIDE
     Indication: Cardiac failure
     Route: 048
  12. SENNOSIDES [Concomitant]
     Active Substance: SENNOSIDES
     Indication: Constipation
     Route: 048
  13. LIMAPROST [Concomitant]
     Active Substance: LIMAPROST
     Indication: Lumbar spinal stenosis
     Route: 048
  14. LYRICA [Concomitant]
     Active Substance: PREGABALIN
     Indication: Lumbar spinal stenosis
     Route: 048
  15. CALONAL [Concomitant]
     Active Substance: ACETAMINOPHEN
     Indication: Lumbar spinal stenosis
     Route: 048
  16. FEBUXOSTAT [Concomitant]
     Active Substance: FEBUXOSTAT
     Indication: Hyperuricaemia
     Route: 048
     Dates: start: 20200715
  17. BROTIZOLAM [Concomitant]
     Active Substance: BROTIZOLAM
     Indication: Insomnia
     Dosage: 0.25 MG, ONCE DAILY
     Route: 048
     Dates: start: 20200716

REACTIONS (12)
  - Drug eruption [Recovered/Resolved]
  - Renal impairment [Recovered/Resolved]
  - Pyrexia [Recovered/Resolved]
  - Hepatic function abnormal [Recovered/Resolved]
  - Blood creatine phosphokinase increased [Recovered/Resolved]
  - Insomnia [Unknown]
  - Dysphagia [Not Recovered/Not Resolved]
  - Performance status decreased [Not Recovered/Not Resolved]
  - Acute myeloid leukaemia recurrent [Fatal]
  - Off label use [Unknown]
  - Product use issue [Unknown]
  - Off label use [Unknown]

NARRATIVE: CASE EVENT DATE: 20200909
